FAERS Safety Report 24414859 (Version 6)
Quarter: 2025Q2

REPORT INFORMATION
  Report Type: Spontaneous
  Country: US (occurrence: US)
  Receive Date: 20241009
  Receipt Date: 20250411
  Transmission Date: 20250717
  Serious: Yes (Other)
  Sender: CSL BEHRING
  Company Number: US-BEH-2024180933

PATIENT
  Age: 69 Year
  Sex: Female
  Weight: 83.914 kg

DRUGS (20)
  1. ZEMAIRA [Suspect]
     Active Substance: .ALPHA.1-PROTEINASE INHIBITOR HUMAN
     Indication: Nicotine dependence
     Dosage: 60MG/KG (5*952=4760 MG)
     Route: 042
  2. ZEMAIRA [Suspect]
     Active Substance: .ALPHA.1-PROTEINASE INHIBITOR HUMAN
     Indication: Off label use
     Dosage: 5000 MG, QW (DOSE 4990 MG)
     Route: 042
  3. ZEMAIRA [Suspect]
     Active Substance: .ALPHA.1-PROTEINASE INHIBITOR HUMAN
     Indication: Alpha-1 antitrypsin deficiency
     Dosage: STRENGTH: 60, QW
     Route: 042
  4. ZEMAIRA [Suspect]
     Active Substance: .ALPHA.1-PROTEINASE INHIBITOR HUMAN
     Dosage: 60 MG/KG
     Route: 042
  5. ALBUTEROL SULFATE [Concomitant]
     Active Substance: ALBUTEROL SULFATE
  6. AMLODIPINE [Concomitant]
     Active Substance: AMLODIPINE BESYLATE
  7. BACLOFEN [Concomitant]
     Active Substance: BACLOFEN
  8. FLONASE ALLERGY RELIEF [Concomitant]
     Active Substance: FLUTICASONE PROPIONATE
  9. GABAPENTIN [Concomitant]
     Active Substance: GABAPENTIN
  10. HYDROCODONE [Concomitant]
     Active Substance: HYDROCODONE
  11. IBUPROFEN [Concomitant]
     Active Substance: IBUPROFEN
  12. INDAPAMIDE [Concomitant]
     Active Substance: INDAPAMIDE
  13. MONTELUKAST [Concomitant]
     Active Substance: MONTELUKAST
  14. OMEPRAZOLE [Concomitant]
     Active Substance: OMEPRAZOLE
  15. SIMVASTATIN [Concomitant]
     Active Substance: SIMVASTATIN
  16. TELMISARTAN [Concomitant]
     Active Substance: TELMISARTAN
  17. TRAZODONE HCL [Concomitant]
     Active Substance: TRAZODONE HYDROCHLORIDE
  18. TRELEGY ELLIPTA [Concomitant]
     Active Substance: FLUTICASONE FUROATE\UMECLIDINIUM BROMIDE\VILANTEROL TRIFENATATE
  19. VENTOLIN [Concomitant]
     Active Substance: ALBUTEROL SULFATE
  20. BENADRYL [Concomitant]
     Active Substance: DIPHENHYDRAMINE HYDROCHLORIDE

REACTIONS (19)
  - Influenza [Unknown]
  - Dyspnoea [Unknown]
  - Dyspnoea exertional [Unknown]
  - Rhinorrhoea [Unknown]
  - Arthropathy [Unknown]
  - Hypertension [Unknown]
  - Fatigue [Unknown]
  - Back pain [Unknown]
  - Musculoskeletal chest pain [Unknown]
  - Respiratory tract congestion [Unknown]
  - Pharyngeal erythema [Unknown]
  - Mobility decreased [Recovered/Resolved]
  - Muscle strain [Recovered/Resolved]
  - Eye pruritus [Unknown]
  - Dyspnoea [Unknown]
  - Blood cholesterol increased [Unknown]
  - Therapy interrupted [Unknown]
  - Therapy interrupted [Unknown]
  - Off label use [Unknown]

NARRATIVE: CASE EVENT DATE: 20250101
